FAERS Safety Report 15374094 (Version 1)
Quarter: 2018Q3

REPORT INFORMATION
  Report Type: Spontaneous
  Country: US (occurrence: US)
  Receive Date: 20180912
  Receipt Date: 20180912
  Transmission Date: 20181010
  Serious: Yes (Other)
  Sender: FDA-Public Use
  Company Number: US-LPDUSPRD-20171089

PATIENT
  Age: 34 Year
  Sex: Female
  Weight: 65.32 kg

DRUGS (4)
  1. TRANEXAMIC [Concomitant]
     Dosage: 650 MG, 2X DAILY DURING PERIOD
     Route: 048
     Dates: start: 20170718
  2. INJECTAFER [Suspect]
     Active Substance: FERRIC CARBOXYMALTOSE
     Dosage: 750 MG IN 250 ML NACL
     Route: 041
     Dates: start: 20170721, end: 20170721
  3. HYDROCODONE [Concomitant]
     Active Substance: HYDROCODONE
     Dosage: UNKNOWN
     Route: 065
  4. AZITHROMYCIN ANHYDROUS. [Concomitant]
     Active Substance: AZITHROMYCIN ANHYDROUS
     Dosage: 250 MG X2 ON DAY1, X1 DAYS 2?4
     Route: 065
     Dates: start: 20170714, end: 20170718

REACTIONS (4)
  - Pruritus [Unknown]
  - Urticaria [Unknown]
  - Erythema [Recovered/Resolved]
  - Hypersensitivity [Unknown]

NARRATIVE: CASE EVENT DATE: 20170721
